FAERS Safety Report 18308425 (Version 6)
Quarter: 2021Q2

REPORT INFORMATION
  Report Type: Report from Study
  Country: AR (occurrence: AR)
  Receive Date: 20200924
  Receipt Date: 20210617
  Transmission Date: 20210717
  Serious: Yes (Other)
  Sender: FDA-Public Use
  Company Number: NVSC2020AR254553

PATIENT
  Age: 60 Year
  Sex: Female
  Weight: 80 kg

DRUGS (25)
  1. INSULIN [Concomitant]
     Active Substance: INSULIN NOS
     Indication: TYPE 2 DIABETES MELLITUS
     Dosage: UNK
     Route: 065
     Dates: start: 20200129
  2. DORZOLAMIDE AND TIMOLOL [Concomitant]
     Active Substance: DORZOLAMIDE\TIMOLOL
     Dosage: UNK
     Route: 065
     Dates: start: 20200327
  3. PREDNISOLONE ACETATE. [Concomitant]
     Active Substance: PREDNISOLONE ACETATE
     Dosage: 1 %, 1 DROP, Q8H
     Route: 065
     Dates: start: 20200227, end: 20200302
  4. OMEPRAZOLE. [Concomitant]
     Active Substance: OMEPRAZOLE
     Indication: DYSPEPSIA
     Dosage: 20 MG, QD
     Route: 065
     Dates: start: 20200129
  5. ATROPINE. [Concomitant]
     Active Substance: ATROPINE
     Indication: PROPHYLAXIS
     Dosage: 10 %, Q24H
     Route: 065
     Dates: start: 20200331, end: 20201006
  6. DORZOLAMIDE AND TIMOLOL [Concomitant]
     Active Substance: DORZOLAMIDE\TIMOLOL
     Indication: IRIDOCYCLITIS
     Dosage: 1 DROP, Q12H
     Route: 065
     Dates: start: 20200205, end: 20200207
  7. GATIFLOXACIN. [Concomitant]
     Active Substance: GATIFLOXACIN
     Indication: CORNEAL OEDEMA
     Dosage: UNK, Q2H
     Route: 065
     Dates: start: 20200331, end: 20201020
  8. PREDNISOLONE ACETATE. [Concomitant]
     Active Substance: PREDNISOLONE ACETATE
     Dosage: 1 %, 1 DROP, Q6H
     Route: 065
     Dates: start: 20200220, end: 20200227
  9. METFORMIN [Concomitant]
     Active Substance: METFORMIN HYDROCHLORIDE
     Indication: TYPE 2 DIABETES MELLITUS
     Dosage: 1000 MG, BID
     Route: 065
     Dates: start: 19950101
  10. NITROFURANTOIN. [Concomitant]
     Active Substance: NITROFURANTOIN
     Dosage: 100 MG, Q12H
     Route: 065
     Dates: start: 20200129, end: 20200209
  11. NITROFURANTOIN. [Concomitant]
     Active Substance: NITROFURANTOIN
     Dosage: 100 MG, Q8H
     Route: 065
     Dates: start: 20200224, end: 20200315
  12. DORZOLAMIDE AND TIMOLOL [Concomitant]
     Active Substance: DORZOLAMIDE\TIMOLOL
     Dosage: 1 DROP, Q12H
     Route: 065
     Dates: start: 20200207, end: 20200327
  13. PREDNISOLONE ACETATE. [Concomitant]
     Active Substance: PREDNISOLONE ACETATE
     Dosage: 1 %, DROP QH
     Route: 065
     Dates: start: 20200207, end: 20200214
  14. PREDNISOLONE ACETATE. [Concomitant]
     Active Substance: PREDNISOLONE ACETATE
     Dosage: 1 %, 1 DROP, Q4H
     Route: 065
     Dates: start: 20200214, end: 20200220
  15. PREDNISOLONE ACETATE. [Concomitant]
     Active Substance: PREDNISOLONE ACETATE
     Dosage: 1 %, Q2H
     Route: 065
     Dates: start: 20200407, end: 20200414
  16. NITROFURANTOIN. [Concomitant]
     Active Substance: NITROFURANTOIN
     Indication: URINARY TRACT INFECTION
     Dosage: 100 MG,Q6H
     Route: 065
     Dates: start: 20200119, end: 20200128
  17. PREDNISOLONE ACETATE. [Concomitant]
     Active Substance: PREDNISOLONE ACETATE
     Dosage: 1 %, QH
     Route: 065
     Dates: start: 20200402, end: 20200407
  18. PREDNISOLONE ACETATE. [Concomitant]
     Active Substance: PREDNISOLONE ACETATE
     Dosage: 1 %, Q6H
     Route: 065
     Dates: start: 20200414, end: 20200430
  19. ACETAZOLAMIDE. [Concomitant]
     Active Substance: ACETAZOLAMIDE
     Indication: IRIDOCYCLITIS
     Dosage: 250 MG, Q12H
     Route: 065
     Dates: start: 20200205, end: 20200207
  20. BROLUCIZUMAB. [Suspect]
     Active Substance: BROLUCIZUMAB
     Indication: DIABETIC RETINAL OEDEMA
     Dosage: 3MG/0.05ML 0.23ML
     Route: 031
     Dates: start: 20190822
  21. PREDNISOLONE ACETATE. [Concomitant]
     Active Substance: PREDNISOLONE ACETATE
     Indication: IRIDOCYCLITIS
     Dosage: 1 % DROP QH
     Route: 065
     Dates: start: 20200205, end: 20200207
  22. PREDNISOLONE ACETATE. [Concomitant]
     Active Substance: PREDNISOLONE ACETATE
     Dosage: 1 %, Q8H
     Route: 065
     Dates: start: 20200430, end: 20200526
  23. LINAGLIPTIN [Concomitant]
     Active Substance: LINAGLIPTIN
     Indication: TYPE 2 DIABETES MELLITUS
     Dosage: 5 MG QD
     Route: 065
     Dates: start: 20181201
  24. POTASSIUM GLUCONATE [Concomitant]
     Active Substance: POTASSIUM GLUCONATE
     Indication: PROPHYLAXIS
     Dosage: UNK
     Route: 065
     Dates: start: 20200327
  25. AFLIBERCEPT [Concomitant]
     Active Substance: AFLIBERCEPT
     Indication: DIABETIC RETINAL OEDEMA
     Dosage: 2 MG, QD
     Route: 065
     Dates: start: 20200521, end: 20200521

REACTIONS (2)
  - Glaucoma [Not Recovered/Not Resolved]
  - Retinal vein thrombosis [Recovered/Resolved with Sequelae]

NARRATIVE: CASE EVENT DATE: 20200205
